FAERS Safety Report 5535048-7 (Version None)
Quarter: 2007Q4

REPORT INFORMATION
  Report Type: 
  Country: None (occurrence: None)
  Receive Date: 20071203
  Receipt Date: 20071121
  Transmission Date: 20080405
  Serious: Yes (Other)
  Sender: FDA-Public Use
  Company Number: 2007BI010529

PATIENT
  Age: 45 Year
  Sex: Female
  Weight: 71.2147 kg

DRUGS (6)
  1. NATALIZUMAB [Suspect]
     Indication: MULTIPLE SCLEROSIS
     Dosage: 300 MG;QM;IV
     Route: 042
     Dates: start: 20070329, end: 20070712
  2. AMBIEN [Concomitant]
  3. CYANCOBALAMIN [Concomitant]
  4. FERROUS GLUCONATE [Concomitant]
  5. IMITREX [Concomitant]
  6. IBUPROFEN [Concomitant]

REACTIONS (6)
  - ANXIETY [None]
  - CARDIOMEGALY [None]
  - CHRONIC OBSTRUCTIVE PULMONARY DISEASE [None]
  - FATIGUE [None]
  - INSOMNIA [None]
  - MITRAL VALVE DISEASE [None]
